FAERS Safety Report 12450158 (Version 1)
Quarter: 2016Q2

REPORT INFORMATION
  Report Type: Spontaneous
  Country: JP (occurrence: JP)
  Receive Date: 20160609
  Receipt Date: 20160609
  Transmission Date: 20160815
  Serious: Yes (Other)
  Sender: FDA-Public Use
  Company Number: JP-PFIZER INC-2016281919

PATIENT
  Age: 76 Year
  Sex: Male

DRUGS (2)
  1. SUTENT [Suspect]
     Active Substance: SUNITINIB MALATE
     Indication: RENAL CANCER
     Dosage: 50 MG, DAILY
     Route: 048
  2. THYRADIN S [Suspect]
     Active Substance: LEVOTHYROXINE SODIUM
     Dosage: 25 UG, DAILY
     Route: 048

REACTIONS (9)
  - Tumour lysis syndrome [Recovered/Resolved]
  - Seizure [Recovered/Resolved]
  - Disease progression [Unknown]
  - Renal cancer [Unknown]
  - Back pain [Recovered/Resolved]
  - Hyponatraemia [Recovered/Resolved]
  - Tumour haemorrhage [Unknown]
  - Altered state of consciousness [Recovered/Resolved]
  - Tumour rupture [Unknown]
